FAERS Safety Report 10039847 (Version 2)
Quarter: 2014Q2

REPORT INFORMATION
  Report Type: Spontaneous
  Country: US (occurrence: US)
  Receive Date: 20140326
  Receipt Date: 20140404
  Transmission Date: 20141212
  Serious: No
  Sender: FDA-Public Use
  Company Number: US-009507513-1403USA005939

PATIENT
  Age: 78 Year
  Sex: Female
  Weight: 73.92 kg

DRUGS (12)
  1. OXYTROL FOR WOMEN [Suspect]
     Indication: HYPERTONIC BLADDER
     Dosage: UNK, UNKNOWN
     Route: 062
     Dates: start: 20140227, end: 20140301
  2. VESICARE [Concomitant]
     Indication: HYPERTONIC BLADDER
     Dosage: UNK, UNKNOWN
  3. LORAZEPAM [Concomitant]
     Indication: ANXIETY
     Dosage: 0.5 MG, QD
  4. OMEPRAZOLE [Concomitant]
     Indication: DYSPEPSIA
     Dosage: 10 MG, QD
  5. TRIMETHOPRIM [Concomitant]
     Indication: INFECTION PROPHYLAXIS
     Dosage: 100 MG, QD
  6. SIMVASTATIN [Concomitant]
     Indication: BLOOD CHOLESTEROL ABNORMAL
     Dosage: 10 MG, QD
  7. LISINOPRIL [Concomitant]
     Indication: BLOOD PRESSURE ABNORMAL
     Dosage: 20 MG, QD
  8. METOPROLOL [Concomitant]
     Indication: BLOOD PRESSURE ABNORMAL
     Dosage: 25 MG, BID
  9. VITAMINS (UNSPECIFIED) [Concomitant]
     Indication: PRODUCT USED FOR UNKNOWN INDICATION
     Dosage: UNK, QD
  10. OYST CAL D [Concomitant]
     Indication: PRODUCT USED FOR UNKNOWN INDICATION
     Dosage: UNK, QD
  11. CHOLECALCIFEROL [Concomitant]
     Indication: PRODUCT USED FOR UNKNOWN INDICATION
     Dosage: 5000 IU, QD
  12. PAROXETINE [Concomitant]
     Indication: DEPRESSION
     Dosage: 30 MG, QD

REACTIONS (4)
  - Pain [Unknown]
  - Rash [Recovering/Resolving]
  - Off label use [Unknown]
  - Drug ineffective [Unknown]
